FAERS Safety Report 17900410 (Version 1)
Quarter: 2020Q2

REPORT INFORMATION
  Report Type: Other
  Country: JP (occurrence: JP)
  Receive Date: 20200616
  Receipt Date: 20200616
  Transmission Date: 20200714
  Serious: Yes (Life-Threatening, Hospitalization, Other)
  Sender: FDA-Public Use
  Company Number: JP-APOTEX-2020AP012360

PATIENT
  Age: 81 Year
  Sex: Female
  Weight: 38 kg

DRUGS (8)
  1. AZULENE SODIUM SULFONATE W/LEVOGLUTAMIDE [Concomitant]
     Indication: PRODUCT USED FOR UNKNOWN INDICATION
     Dosage: 0.5 G, QD, AFTER DINNER
     Route: 065
  2. PAXIL CR [Suspect]
     Active Substance: PAROXETINE HYDROCHLORIDE
     Indication: DEPRESSION
     Dosage: 25 MG, QD
     Route: 048
     Dates: end: 20190823
  3. LORAMET [Concomitant]
     Active Substance: LORMETAZEPAM
     Indication: PRODUCT USED FOR UNKNOWN INDICATION
     Dosage: 1 DF, QD, BEFORE BEDTIME
     Route: 065
  4. KAKKONTOKASENKYUSHIN^I             /07986001/ [Concomitant]
     Indication: PRODUCT USED FOR UNKNOWN INDICATION
     Dosage: 1 DF, BID, IN A FEW HOURS AFTER BREAKFAST AND DINNER
     Route: 065
  5. ATORVASTATIN CALCIUM. [Concomitant]
     Active Substance: ATORVASTATIN CALCIUM
     Indication: PRODUCT USED FOR UNKNOWN INDICATION
     Dosage: 1 DF, QD, AFTER DINNER
     Route: 065
  6. MAGNESIUM OXIDE. [Concomitant]
     Active Substance: MAGNESIUM OXIDE
     Indication: PRODUCT USED FOR UNKNOWN INDICATION
     Dosage: 1 G, TID AFTER EACH MEAL
     Route: 065
  7. YOKUKANSAN [Concomitant]
     Active Substance: HERBALS
     Indication: PRODUCT USED FOR UNKNOWN INDICATION
     Dosage: 1 DF, QD, BEFORE BEDTIME
     Route: 065
  8. LOXOPROFEN                         /00890702/ [Concomitant]
     Active Substance: LOXOPROFEN
     Indication: PRODUCT USED FOR UNKNOWN INDICATION
     Dosage: UNK UNK, QD ON LOWER BACK
     Route: 062

REACTIONS (6)
  - Vomiting [Unknown]
  - Hyponatraemia [Recovered/Resolved]
  - Hypochloraemia [Unknown]
  - Hypophosphataemia [Unknown]
  - Inappropriate antidiuretic hormone secretion [Unknown]
  - Altered state of consciousness [Recovering/Resolving]

NARRATIVE: CASE EVENT DATE: 20190824
